FAERS Safety Report 16925826 (Version 3)
Quarter: 2019Q4

REPORT INFORMATION
  Report Type: Spontaneous
  Country: CA (occurrence: CA)
  Receive Date: 20191016
  Receipt Date: 20191119
  Transmission Date: 20200122
  Serious: Yes (Other)
  Sender: FDA-Public Use
  Company Number: CA-ASTRAZENECA-2019SF46812

PATIENT
  Age: 51 Year
  Sex: Female

DRUGS (2)
  1. RHINOCORT AQUA [Suspect]
     Active Substance: BUDESONIDE
     Indication: HYPERSENSITIVITY
     Dosage: SINGLE DOSE 2 SPRAY ON EACH NOSTRIL ONCE
     Route: 045
     Dates: end: 20191004
  2. RHINOCORT AQUA [Suspect]
     Active Substance: BUDESONIDE
     Indication: NASAL INFLAMMATION
     Dosage: SINGLE DOSE 2 SPRAY ON EACH NOSTRIL ONCE
     Route: 045
     Dates: end: 20191004

REACTIONS (7)
  - Vomiting [Recovering/Resolving]
  - Dyspnoea [Recovering/Resolving]
  - Withdrawal syndrome [Recovering/Resolving]
  - Dizziness [Recovering/Resolving]
  - Nausea [Recovering/Resolving]
  - Drug ineffective [Unknown]
  - Tachycardia [Recovering/Resolving]

NARRATIVE: CASE EVENT DATE: 20191004
